FAERS Safety Report 8486699-1 (Version None)
Quarter: 2012Q3

REPORT INFORMATION
  Report Type: 
  Country: None (occurrence: None)
  Receive Date: 20120704
  Receipt Date: 20120628
  Transmission Date: 20120928
  Serious: Yes (Other)
  Sender: FDA-Public Use
  Company Number: US-AMGEN-USASP2012040257

PATIENT
  Sex: Female

DRUGS (1)
  1. PROLIA [Suspect]
     Indication: OSTEOPOROSIS POSTMENOPAUSAL
     Dates: start: 20110901

REACTIONS (6)
  - PAIN IN JAW [None]
  - LYMPHADENOPATHY [None]
  - SJOGREN'S SYNDROME [None]
  - STOMATITIS [None]
  - SWELLING FACE [None]
  - JAW DISORDER [None]
